FAERS Safety Report 20970128 (Version 2)
Quarter: 2022Q2

REPORT INFORMATION
  Report Type: Spontaneous
  Country: US (occurrence: US)
  Receive Date: 20220616
  Receipt Date: 20220616
  Transmission Date: 20220721
  Serious: No
  Sender: FDA-Public Use
  Company Number: US-SANOFI-01125909

PATIENT
  Sex: Female

DRUGS (1)
  1. AMBIEN [Suspect]
     Active Substance: ZOLPIDEM TARTRATE
     Indication: Sleep disorder
     Dosage: 20 MG, QD

REACTIONS (4)
  - Insomnia [Unknown]
  - Delayed sleep phase [Unknown]
  - Therapeutic product effect decreased [Unknown]
  - Product use issue [Unknown]
